FAERS Safety Report 9825011 (Version 1)
Quarter: 2013Q4

REPORT INFORMATION
  Report Type: Spontaneous
  Country: US (occurrence: None)
  Receive Date: 20131223
  Receipt Date: 20131223
  Transmission Date: 20140711
  Serious: Yes (Other)
  Sender: FDA-Public Use
  Company Number: 217278LEO

PATIENT
  Age: 73 Year
  Sex: Female

DRUGS (6)
  1. PICATO [Suspect]
     Indication: ACTINIC KERATOSIS
     Dates: start: 20120409
  2. ATARAX [Concomitant]
  3. Z-PAK [Concomitant]
  4. LICOID LIPOCREAM [Concomitant]
  5. AQUAPHOR [Concomitant]
  6. BATH OIL [Concomitant]

REACTIONS (9)
  - Application site vesicles [None]
  - Burning sensation [None]
  - Wound secretion [None]
  - Application site swelling [None]
  - Application site scab [None]
  - Application site pain [None]
  - Application site pustules [None]
  - Application site exfoliation [None]
  - Off label use [None]
